FAERS Safety Report 11483039 (Version 1)
Quarter: 2015Q3

REPORT INFORMATION
  Report Type: Spontaneous
  Country: US (occurrence: US)
  Receive Date: 20150903
  Receipt Date: 20150903
  Transmission Date: 20151125
  Serious: No
  Sender: FDA-Public Use
  Company Number: US-ELI_LILLY_AND_COMPANY-US201108008341

PATIENT
  Age: 30 Year
  Sex: Female

DRUGS (6)
  1. CYMBALTA [Suspect]
     Active Substance: DULOXETINE HYDROCHLORIDE
     Indication: DEPRESSION
     Dosage: 60 MG, QD
     Dates: end: 201105
  2. CYMBALTA [Suspect]
     Active Substance: DULOXETINE HYDROCHLORIDE
     Dosage: 90 MG, QD
     Dates: start: 201105
  3. OMEPRAZOLE. [Concomitant]
     Active Substance: OMEPRAZOLE
  4. IRON [Concomitant]
     Active Substance: IRON
  5. LABETALOL [Concomitant]
     Active Substance: LABETALOL\LABETALOL HYDROCHLORIDE
  6. BICARBONATE [Concomitant]
     Active Substance: BICARBONATE ION

REACTIONS (4)
  - Depression [Unknown]
  - Anaemia [Unknown]
  - Exposure during breast feeding [Not Recovered/Not Resolved]
  - Exposure during pregnancy [Recovered/Resolved]
